FAERS Safety Report 19587821 (Version 1)
Quarter: 2021Q3

REPORT INFORMATION
  Report Type: Spontaneous
  Country: AU (occurrence: AU)
  Receive Date: 20210721
  Receipt Date: 20210721
  Transmission Date: 20211014
  Serious: Yes (Other)
  Sender: FDA-Public Use
  Company Number: AU-LUPIN PHARMACEUTICALS INC.-2021-12411

PATIENT
  Age: 63 Year
  Sex: Male

DRUGS (14)
  1. TRIAMCINOLONE [Concomitant]
     Active Substance: TRIAMCINOLONE
     Indication: XANTHOGRANULOMA
     Dosage: 10 MILLIGRAM PER MILLILITRE
     Route: 026
     Dates: start: 201710
  2. BETAMETHASONE DIPROPIONATE. [Concomitant]
     Active Substance: BETAMETHASONE DIPROPIONATE
     Indication: XANTHOGRANULOMA
     Dosage: UNK
     Route: 061
     Dates: start: 201710
  3. MELPHALAN. [Concomitant]
     Active Substance: MELPHALAN
     Indication: XANTHOGRANULOMA
     Dosage: 10 MILLIGRAM, QD (FOR FOUR CONSECUTIVE DAYS/MONTH WAS TRIED FOR 5 MONTHS)
     Route: 065
     Dates: start: 201811
  4. HYDROXYCHLOROQUINE [Suspect]
     Active Substance: HYDROXYCHLOROQUINE
     Dosage: 400 MILLIGRAM, QD
     Route: 065
     Dates: start: 201809, end: 201811
  5. IMMUNOGLOBULIN [Concomitant]
     Indication: XANTHOGRANULOMA
     Dosage: 2 GRAM PER KILOGRAM (OVER 5 DAYS EACH MONTH FOR 4 MONTHS)
     Route: 042
     Dates: start: 201405
  6. RITONAVIR. [Concomitant]
     Active Substance: RITONAVIR
     Indication: XANTHOGRANULOMA
     Dosage: UNK
     Route: 065
     Dates: start: 2016
  7. DAPSONE. [Suspect]
     Active Substance: DAPSONE
     Indication: XANTHOGRANULOMA
     Dosage: 50 MILLIGRAM, QD (IN THE MORNING)
     Route: 065
     Dates: start: 2015
  8. OMBITASVIR [Concomitant]
     Active Substance: OMBITASVIR
     Indication: XANTHOGRANULOMA
     Dosage: UNK
     Route: 065
     Dates: start: 2016
  9. HYDROXYCHLOROQUINE [Suspect]
     Active Substance: HYDROXYCHLOROQUINE
     Indication: XANTHOGRANULOMA
     Dosage: INITIAL DOSE NOT STATED
     Route: 065
  10. PREDNISONE. [Concomitant]
     Active Substance: PREDNISONE
     Indication: XANTHOGRANULOMA
     Dosage: 60 MILLIGRAM, QD (FOR FOUR CONSECUTIVE DAYS/MONTH WAS TRIED FOR 5 MONTHS)
     Route: 065
     Dates: start: 201811
  11. ACITRETIN. [Suspect]
     Active Substance: ACITRETIN
     Indication: XANTHOGRANULOMA
     Dosage: UNK
     Route: 065
  12. DAPSONE. [Suspect]
     Active Substance: DAPSONE
     Dosage: 25 MILLIGRAM, QD (AT NIGHT)
     Route: 065
     Dates: start: 2015, end: 201512
  13. THALIDOMIDE [Suspect]
     Active Substance: THALIDOMIDE
     Indication: XANTHOGRANULOMA
     Dosage: 100 MILLIGRAM, QD
     Route: 065
     Dates: start: 201502
  14. PARITAPREVIR [Concomitant]
     Active Substance: PARITAPREVIR
     Indication: XANTHOGRANULOMA
     Dosage: UNK
     Route: 065
     Dates: start: 2016

REACTIONS (1)
  - Drug ineffective [Unknown]

NARRATIVE: CASE EVENT DATE: 201403
